FAERS Safety Report 8951338 (Version 2)
Quarter: 2013Q1

REPORT INFORMATION
  Report Type: Spontaneous
  Country: DE (occurrence: DE)
  Receive Date: 20121207
  Receipt Date: 20130319
  Transmission Date: 20140127
  Serious: Yes (Other)
  Sender: FDA-Public Use
  Company Number: DE-RANBAXY-2012RR-62852

PATIENT
  Sex: Female
  Weight: 3.7 kg

DRUGS (3)
  1. MIRTAZAPINE [Suspect]
     Indication: MATERNAL EXPOSURE TIMING UNSPECIFIED
     Dosage: 15 MG/DAY
     Route: 064
     Dates: start: 201112
  2. SERTRALINE [Suspect]
     Indication: MATERNAL EXPOSURE DURING PREGNANCY
     Dosage: 50 MG/DAY
     Route: 064
  3. CENTRUM MATERNA [Concomitant]
     Indication: MATERNAL EXPOSURE DURING PREGNANCY
     Dosage: 0.4 MG/DAY
     Route: 064

REACTIONS (1)
  - Apnoea neonatal [Recovered/Resolved]
